FAERS Safety Report 24027832 (Version 1)
Quarter: 2024Q2

REPORT INFORMATION
  Report Type: Spontaneous
  Country: US (occurrence: US)
  Receive Date: 20240628
  Receipt Date: 20240628
  Transmission Date: 20240716
  Serious: Yes (Other)
  Sender: FDA-Public Use
  Company Number: US-BEH-2024174326

PATIENT
  Sex: Female

DRUGS (1)
  1. HUMAN IMMUNOGLOBULIN G [Suspect]
     Active Substance: HUMAN IMMUNOGLOBULIN G
     Indication: Isoimmune haemolytic disease
     Route: 064

REACTIONS (4)
  - Hydrops foetalis [Unknown]
  - Premature delivery [Unknown]
  - Foetal exposure during pregnancy [Unknown]
  - Off label use [Unknown]
